FAERS Safety Report 19469497 (Version 1)
Quarter: 2021Q2

REPORT INFORMATION
  Report Type: Spontaneous
  Country: CA (occurrence: CA)
  Receive Date: 20210629
  Receipt Date: 20210629
  Transmission Date: 20210717
  Serious: Yes (Hospitalization)
  Sender: FDA-Public Use
  Company Number: CA-ROCHE-2859058

PATIENT
  Sex: Female

DRUGS (11)
  1. ACETYLSALICYLIC ACID [Concomitant]
     Active Substance: ASPIRIN
     Route: 065
  2. CANDESARTAN. [Concomitant]
     Active Substance: CANDESARTAN
  3. SIMPONI [Concomitant]
     Active Substance: GOLIMUMAB
     Route: 058
  4. RITUXIMAB. [Suspect]
     Active Substance: RITUXIMAB
     Indication: RHEUMATOID ARTHRITIS
     Route: 041
  5. ACETAMINOPHEN. [Concomitant]
     Active Substance: ACETAMINOPHEN
  6. ATORVASTATIN [Concomitant]
     Active Substance: ATORVASTATIN
     Route: 065
  7. PAROXETINE. [Concomitant]
     Active Substance: PAROXETINE
  8. DESOXIMETASONE. [Concomitant]
     Active Substance: DESOXIMETASONE
  9. METOPROLOL. [Concomitant]
     Active Substance: METOPROLOL
  10. AMLODIPINE [Concomitant]
     Active Substance: AMLODIPINE BESYLATE
  11. NITROGLYCERIN. [Concomitant]
     Active Substance: NITROGLYCERIN

REACTIONS (1)
  - Seizure [Unknown]
